FAERS Safety Report 24923364 (Version 2)
Quarter: 2025Q1

REPORT INFORMATION
  Report Type: Spontaneous
  Country: US (occurrence: US)
  Receive Date: 20250204
  Receipt Date: 20250303
  Transmission Date: 20250408
  Serious: No
  Sender: SANOFI AVENTIS
  Company Number: US-SA-2025SA032251

PATIENT
  Sex: Female
  Weight: 126 kg

DRUGS (15)
  1. DUPIXENT [Suspect]
     Active Substance: DUPILUMAB
     Indication: Asthma
     Dosage: 300 MG, QOW
     Route: 058
  2. DUPIXENT [Suspect]
     Active Substance: DUPILUMAB
     Indication: Illness
  3. BREZTRI [Concomitant]
     Active Substance: BUDESONIDE\FORMOTEROL\GLYCOPYRROLATE
  4. MONTELUKAST SODIUM [Concomitant]
     Active Substance: MONTELUKAST SODIUM
  5. AZITHROMYCIN [Concomitant]
     Active Substance: AZITHROMYCIN
  6. BUDESONIDE [Concomitant]
     Active Substance: BUDESONIDE
  7. BUPROPION [Concomitant]
     Active Substance: BUPROPION
  8. HUMALOG [Concomitant]
     Active Substance: INSULIN LISPRO
  9. DEXMETHYLPHENIDATE HYDROCHLORIDE [Concomitant]
     Active Substance: DEXMETHYLPHENIDATE HYDROCHLORIDE
  10. SULFAMETHOXAZOLE\TRIMETHOPRIM [Concomitant]
     Active Substance: SULFAMETHOXAZOLE\TRIMETHOPRIM
  11. COMBIVENT RESPIMAT [Concomitant]
     Active Substance: ALBUTEROL SULFATE\IPRATROPIUM BROMIDE
  12. ESCITALOPRAM OXALATE [Concomitant]
     Active Substance: ESCITALOPRAM OXALATE
  13. LOSARTAN POTASSIUM [Concomitant]
     Active Substance: LOSARTAN POTASSIUM
  14. ALBUTEROL SULFATE [Concomitant]
     Active Substance: ALBUTEROL SULFATE
  15. PREDNISONE [Concomitant]
     Active Substance: PREDNISONE

REACTIONS (2)
  - Skin reaction [Unknown]
  - Drug ineffective [Unknown]
